FAERS Safety Report 16014878 (Version 1)
Quarter: 2019Q1

REPORT INFORMATION
  Report Type: Spontaneous
  Country: US (occurrence: US)
  Receive Date: 20190227
  Receipt Date: 20190227
  Transmission Date: 20190418
  Serious: Yes (Hospitalization, Disabling)
  Sender: FDA-Public Use
  Company Number: US-009507513-1902USA008724

PATIENT
  Age: 48 Year
  Sex: Male
  Weight: 101.98 kg

DRUGS (2)
  1. CUBICIN [Suspect]
     Active Substance: DAPTOMYCIN
     Indication: CELLULITIS
     Dosage: 750 MILLIGRAM
     Route: 042
     Dates: start: 20110823, end: 20110825
  2. CUBICIN [Suspect]
     Active Substance: DAPTOMYCIN
     Dosage: 750 UNK
     Route: 042
     Dates: start: 20110826, end: 20110829

REACTIONS (4)
  - Pyrexia [Not Recovered/Not Resolved]
  - Chills [Not Recovered/Not Resolved]
  - Stenotrophomonas test positive [Not Recovered/Not Resolved]
  - Product contamination [Not Recovered/Not Resolved]

NARRATIVE: CASE EVENT DATE: 20110830
